FAERS Safety Report 24339174 (Version 1)
Quarter: 2024Q3

REPORT INFORMATION
  Report Type: Spontaneous
  Country: US (occurrence: None)
  Receive Date: 20240919
  Receipt Date: 20240919
  Transmission Date: 20241016
  Serious: Yes (Hospitalization)
  Sender: Public
  Company Number: None

PATIENT
  Sex: Male
  Weight: 78.3 kg

DRUGS (6)
  1. CARBOPLATIN [Suspect]
     Active Substance: CARBOPLATIN
  2. ETOPOSIDE [Suspect]
     Active Substance: ETOPOSIDE
  3. FILGRASTIM [Suspect]
     Active Substance: FILGRASTIM
     Dates: end: 20231216
  4. IFOSFAMIDE [Suspect]
     Active Substance: IFOSFAMIDE
     Dates: end: 20231224
  5. MESNA [Suspect]
     Active Substance: MESNA
     Dates: start: 20231224
  6. NEULASTA [Suspect]
     Active Substance: PEGFILGRASTIM
     Dates: end: 20231229

REACTIONS (1)
  - Acute myeloid leukaemia [None]

NARRATIVE: CASE EVENT DATE: 20240826
